FAERS Safety Report 9095142 (Version 2)
Quarter: 2013Q1

REPORT INFORMATION
  Report Type: Spontaneous
  Country: US (occurrence: None)
  Receive Date: 20130123
  Receipt Date: 20130125
  Transmission Date: 20140127
  Serious: Yes (Hospitalization)
  Sender: FDA-Public Use
  Company Number: SP06335

PATIENT
  Age: 60 Year
  Sex: Female
  Weight: 55.34 kg

DRUGS (10)
  1. XIFAXAN (TABLETS) [Suspect]
     Indication: HEPATIC ENCEPHALOPATHY
     Route: 048
     Dates: start: 201206
  2. LACTULOSE [Concomitant]
  3. PROPRANOLOL [Concomitant]
  4. NEURONTIN [Concomitant]
  5. LASIX [Concomitant]
  6. PREVACID [Concomitant]
  7. OXYCODONE [Concomitant]
  8. ALDACTONE [Concomitant]
  9. NEOMYCIN [Concomitant]
  10. FOLIC ACID [Concomitant]

REACTIONS (15)
  - Dizziness [None]
  - Fall [None]
  - Upper limb fracture [None]
  - Patella fracture [None]
  - Fractured coccyx [None]
  - Facial bones fracture [None]
  - Contusion [None]
  - Hepatic encephalopathy [None]
  - Condition aggravated [None]
  - Drug ineffective [None]
  - Alcohol use [None]
  - Bone contusion [None]
  - Balance disorder [None]
  - Gait disturbance [None]
  - Asterixis [None]
